FAERS Safety Report 13703327 (Version 6)
Quarter: 2017Q4

REPORT INFORMATION
  Report Type: Report from Study
  Country: CA (occurrence: CA)
  Receive Date: 20170629
  Receipt Date: 20171219
  Transmission Date: 20180320
  Serious: Yes (Hospitalization)
  Sender: FDA-Public Use
  Company Number: PHHY2017CA093595

PATIENT
  Age: 86 Year
  Sex: Female

DRUGS (3)
  1. TYLENOL [Concomitant]
     Active Substance: ACETAMINOPHEN
     Indication: PRODUCT USED FOR UNKNOWN INDICATION
     Dosage: UNK
     Route: 065
  2. REVOLADE [Suspect]
     Active Substance: ELTROMBOPAG
     Dosage: 75 MG, QD
     Route: 048
     Dates: start: 20170802
  3. REVOLADE [Suspect]
     Active Substance: ELTROMBOPAG
     Indication: IMMUNE THROMBOCYTOPENIC PURPURA
     Dosage: 1 DF (50 MG CONCENTRATION), QD
     Route: 048
     Dates: start: 20170524

REACTIONS (15)
  - Blood bilirubin increased [Unknown]
  - Thrombocytopenia [Unknown]
  - Crepitations [Unknown]
  - Localised infection [Unknown]
  - Nausea [Unknown]
  - Alanine aminotransferase increased [Unknown]
  - Cardiac failure chronic [Unknown]
  - Haemoglobin decreased [Unknown]
  - Cardiac murmur [Unknown]
  - Oedema peripheral [Not Recovered/Not Resolved]
  - Aspartate aminotransferase increased [Unknown]
  - Glomerular filtration rate increased [Unknown]
  - Ecchymosis [Unknown]
  - Blood creatinine increased [Unknown]
  - Blood lactate dehydrogenase increased [Unknown]

NARRATIVE: CASE EVENT DATE: 20170621
